FAERS Safety Report 6938526-9 (Version None)
Quarter: 2010Q3

REPORT INFORMATION
  Report Type: 
  Country: None (occurrence: None)
  Receive Date: 20100824
  Receipt Date: 20100809
  Transmission Date: 20110219
  Serious: Yes (Hospitalization)
  Sender: FDA-Public Use
  Company Number: CN-BAYER-201035457GPV

PATIENT
  Age: 80 Year
  Sex: Female

DRUGS (4)
  1. GLUCOBAY [Suspect]
     Indication: DIABETES MELLITUS
     Dosage: UNIT DOSE: 50 MG
     Route: 048
     Dates: start: 20100504, end: 20100510
  2. NOVOLIN R [Concomitant]
     Route: 058
  3. PIOGLITAZONE [Concomitant]
     Route: 048
  4. KABOPING [Concomitant]
     Route: 048
     Dates: end: 20100503

REACTIONS (1)
  - BLOOD GLUCOSE INCREASED [None]
